FAERS Safety Report 7627703-X (Version None)
Quarter: 2011Q3

REPORT INFORMATION
  Report Type: 
  Country: None (occurrence: None)
  Receive Date: 20110721
  Receipt Date: 20110719
  Transmission Date: 20111222
  Serious: Yes (Hospitalization, Other)
  Sender: FDA-Public Use
  Company Number: US-PFIZER INC-2011164301

PATIENT
  Sex: Female
  Weight: 76.644 kg

DRUGS (3)
  1. LYRICA [Suspect]
     Indication: FIBROMYALGIA
     Dosage: 300 MG, 1X/DAY
     Route: 048
     Dates: start: 20060101
  2. ZOLOFT [Concomitant]
     Indication: BIPOLAR DISORDER
     Dosage: 150 MG, 1X/DAY
  3. ACETYLSALICYLIC ACID [Concomitant]
     Indication: CARDIAC DISORDER
     Dosage: 300 MG, 1X/DAY

REACTIONS (3)
  - PANCREATITIS [None]
  - ABDOMINAL PAIN UPPER [None]
  - ENZYME ABNORMALITY [None]
